FAERS Safety Report 6678813-5 (Version None)
Quarter: 2010Q2

REPORT INFORMATION
  Report Type: 
  Country: None (occurrence: None)
  Receive Date: 20100413
  Receipt Date: 20100407
  Transmission Date: 20101027
  Serious: Yes (Hospitalization)
  Sender: FDA-Public Use
  Company Number: JP-ASTRAZENECA-2010SE15210

PATIENT
  Age: 80 Year
  Sex: Female

DRUGS (1)
  1. SYMBICORT [Suspect]
     Dosage: 1 DF
     Route: 055
     Dates: start: 20100215, end: 20100319

REACTIONS (2)
  - ANGINA PECTORIS [None]
  - TRANSIENT ISCHAEMIC ATTACK [None]
